FAERS Safety Report 5705089-5 (Version None)
Quarter: 2008Q2

REPORT INFORMATION
  Report Type: 
  Country: None (occurrence: None)
  Receive Date: 20080414
  Receipt Date: 20080408
  Transmission Date: 20081010
  Serious: Yes (Other)
  Sender: FDA-Public Use
  Company Number: US-GILEAD-2008-0016011

PATIENT
  Age: 6 Day
  Sex: Male
  Weight: 3 kg

DRUGS (3)
  1. TENOFOVIR DISOPROXIL FUMARATE [Suspect]
     Indication: PROPHYLAXIS AGAINST HIV INFECTION
     Route: 048
     Dates: start: 20080318, end: 20080318
  2. EMTRICITABINE [Suspect]
     Indication: PROPHYLAXIS AGAINST HIV INFECTION
     Route: 048
     Dates: start: 20080318, end: 20080318
  3. AZT [Concomitant]
     Indication: PROPHYLAXIS AGAINST HIV INFECTION

REACTIONS (1)
  - ANAEMIA [None]
